FAERS Safety Report 20572410 (Version 4)
Quarter: 2024Q2

REPORT INFORMATION
  Report Type: Spontaneous
  Country: JP (occurrence: JP)
  Receive Date: 20220309
  Receipt Date: 20240527
  Transmission Date: 20240716
  Serious: Yes (Other)
  Sender: FDA-Public Use
  Company Number: JP-MLMSERVICE-20220216-3379453-1

PATIENT
  Age: 76 Year
  Sex: Male

DRUGS (8)
  1. LANSOPRAZOLE [Suspect]
     Active Substance: LANSOPRAZOLE
     Indication: Oesophageal ulcer haemorrhage
     Route: 065
  2. LANSOPRAZOLE [Suspect]
     Active Substance: LANSOPRAZOLE
     Indication: Oesophageal ulcer haemorrhage
     Dosage: DOSAGE TEXT: DOSAGE IS UNKNOWN
     Route: 065
  3. RABEPRAZOLE [Suspect]
     Active Substance: RABEPRAZOLE
     Indication: Oesophageal ulcer haemorrhage
     Route: 065
  4. RABEPRAZOLE [Suspect]
     Active Substance: RABEPRAZOLE
     Indication: Oesophageal ulcer haemorrhage
     Dosage: DOSAGE TEXT: DOSAGE IS UNKNOWN
     Route: 065
  5. ESOMEPRAZOLE [Suspect]
     Active Substance: ESOMEPRAZOLE
     Indication: Oesophageal ulcer haemorrhage
     Route: 065
  6. ESOMEPRAZOLE [Suspect]
     Active Substance: ESOMEPRAZOLE
     Indication: Oesophageal ulcer haemorrhage
     Dosage: DOSAGE TEXT: DOSAGE IS UNKNOWN
     Route: 065
  7. VONOPRAZAN [Suspect]
     Active Substance: VONOPRAZAN
     Indication: Oesophageal ulcer haemorrhage
     Route: 065
  8. VONOPRAZAN [Suspect]
     Active Substance: VONOPRAZAN
     Indication: Oesophageal ulcer haemorrhage
     Route: 065

REACTIONS (3)
  - Duodenal polyp [Recovered/Resolved]
  - Chronic gastritis [Recovered/Resolved]
  - Hypergastrinaemia [Recovered/Resolved]
